FAERS Safety Report 11843923 (Version 1)
Quarter: 2015Q4

REPORT INFORMATION
  Report Type: Report from Study
  Country: BR (occurrence: BR)
  Receive Date: 20151217
  Receipt Date: 20151217
  Transmission Date: 20160305
  Serious: Yes (Other)
  Sender: FDA-Public Use
  Company Number: BR-ROCHE-1555743

PATIENT
  Age: 62 Year
  Sex: Female
  Weight: 77 kg

DRUGS (5)
  1. ACTEMRA [Suspect]
     Active Substance: TOCILIZUMAB
     Indication: RHEUMATOID ARTHRITIS
     Dosage: SUBSEQUENT DOSES ON /FEB/2015, 19/NOV/2014 AND ON 01/JAN/2015?MOST RECENT DOSE OF TOCILIZZUMAB: 01/J
     Route: 042
     Dates: start: 20141024
  2. ZOLPIDEM HEMITARTRATE [Suspect]
     Active Substance: ZOLPIDEM\ZOLPIDEM TARTRATE
     Indication: PRODUCT USED FOR UNKNOWN INDICATION
     Route: 065
  3. ARAVA [Concomitant]
     Active Substance: LEFLUNOMIDE
  4. OMEGA-3 ACIDS [Concomitant]
     Active Substance: OMEGA-3 FATTY ACIDS
  5. OLCADIL [Concomitant]
     Active Substance: CLOXAZOLAM

REACTIONS (12)
  - Drug hypersensitivity [Unknown]
  - Nausea [Not Recovered/Not Resolved]
  - Constipation [Unknown]
  - Weight decreased [Unknown]
  - Insomnia [Recovered/Resolved]
  - Erysipelas [Unknown]
  - Tooth disorder [Unknown]
  - Oropharyngeal pain [Not Recovered/Not Resolved]
  - Pyrexia [Recovered/Resolved]
  - Decreased appetite [Not Recovered/Not Resolved]
  - Pharyngitis [Unknown]
  - Pruritus [Recovering/Resolving]

NARRATIVE: CASE EVENT DATE: 20150315
